FAERS Safety Report 15227794 (Version 2)
Quarter: 2018Q3

REPORT INFORMATION
  Report Type: Report from Study
  Country: JP (occurrence: JP)
  Receive Date: 20180801
  Receipt Date: 20180815
  Transmission Date: 20181010
  Serious: Yes (Life-Threatening)
  Sender: FDA-Public Use
  Company Number: JP-PFIZER INC-2018301734

PATIENT
  Age: 68 Year
  Sex: Female

DRUGS (1)
  1. TOFACITINIB CITRATE [Suspect]
     Active Substance: TOFACITINIB CITRATE

REACTIONS (1)
  - Bowen^s disease [Unknown]

NARRATIVE: CASE EVENT DATE: 20180620
